FAERS Safety Report 16051398 (Version 1)
Quarter: 2019Q1

REPORT INFORMATION
  Report Type: Report from Study
  Country: US (occurrence: US)
  Receive Date: 20190308
  Receipt Date: 20190308
  Transmission Date: 20190418
  Serious: Yes (Death)
  Sender: FDA-Public Use
  Company Number: US-ROCHE-2279090

PATIENT

DRUGS (5)
  1. CC-122 [Suspect]
     Active Substance: AVADOMIDE
     Indication: DIFFUSE LARGE B-CELL LYMPHOMA
     Dosage: 1MG, 2MG, 3MG, OR 4MG WAS GIVEN ORALLY QD OR FOR 5 OUT OF 7 DAYS/WEEK (5/7D).
     Route: 048
  2. CC-292 [Suspect]
     Active Substance: SPEBRUTINIB
     Indication: DIFFUSE LARGE B-CELL LYMPHOMA
     Route: 048
  3. RITUXIMAB. [Suspect]
     Active Substance: RITUXIMAB
     Indication: DIFFUSE LARGE B-CELL LYMPHOMA
     Route: 042
  4. CC-223 [Suspect]
     Active Substance: INVESTIGATIONAL PRODUCT
     Indication: DIFFUSE LARGE B-CELL LYMPHOMA
     Dosage: 15MG, 20MG, OR 30MG WAS GIVEN ORALLY QD
     Route: 048
  5. CC-122 [Suspect]
     Active Substance: AVADOMIDE
     Route: 048

REACTIONS (1)
  - Sepsis [Fatal]
